FAERS Safety Report 16490393 (Version 5)
Quarter: 2019Q4

REPORT INFORMATION
  Report Type: Report from Study
  Country: None (occurrence: US)
  Receive Date: 20190628
  Receipt Date: 20191203
  Transmission Date: 20200122
  Serious: Yes (Other)
  Sender: FDA-Public Use
  Company Number: US-ABBVIE-19K-163-2833428-00

PATIENT
  Age: 51 Year
  Sex: Female

DRUGS (4)
  1. HUMIRA [Suspect]
     Active Substance: ADALIMUMAB
     Dosage: CF PEN
     Route: 058
     Dates: start: 20190523, end: 2019
  2. HUMIRA [Suspect]
     Active Substance: ADALIMUMAB
     Dosage: HUMIRA CITRATE FREE
     Route: 058
     Dates: start: 20190924
  3. LYRICA [Concomitant]
     Active Substance: PREGABALIN
     Indication: PRODUCT USED FOR UNKNOWN INDICATION
  4. HUMIRA [Suspect]
     Active Substance: ADALIMUMAB
     Indication: RHEUMATOID ARTHRITIS
     Dosage: CITRATE FREE
     Route: 058
     Dates: start: 20190510, end: 201905

REACTIONS (22)
  - Pain [Unknown]
  - Drug ineffective [Unknown]
  - Suicidal ideation [Unknown]
  - Choking sensation [Recovering/Resolving]
  - Dysphonia [Unknown]
  - Injection site extravasation [Unknown]
  - Swelling [Not Recovered/Not Resolved]
  - Mobility decreased [Recovering/Resolving]
  - Injection site discolouration [Unknown]
  - Insomnia [Recovering/Resolving]
  - Pharyngeal disorder [Unknown]
  - Emotional disorder [Unknown]
  - Dyspnoea [Unknown]
  - Injection site bruising [Unknown]
  - Depression [Unknown]
  - Back pain [Unknown]
  - Injection site pain [Unknown]
  - Limb injury [Unknown]
  - Back disorder [Unknown]
  - Incorrect dose administered [Unknown]
  - Fall [Unknown]
  - Back pain [Unknown]

NARRATIVE: CASE EVENT DATE: 2019
